FAERS Safety Report 24745516 (Version 2)
Quarter: 2025Q1

REPORT INFORMATION
  Report Type: Spontaneous
  Country: US (occurrence: US)
  Receive Date: 20241218
  Receipt Date: 20250214
  Transmission Date: 20250408
  Serious: No
  Sender: ALEXION PHARMACEUTICALS
  Company Number: US-AstraZeneca-CH-00769966AP

PATIENT

DRUGS (1)
  1. EXENATIDE [Suspect]
     Active Substance: EXENATIDE

REACTIONS (1)
  - Device issue [Unknown]
